FAERS Safety Report 14927970 (Version 1)
Quarter: 2018Q2

REPORT INFORMATION
  Report Type: Spontaneous
  Country: US (occurrence: US)
  Receive Date: 20180504
  Receipt Date: 20180504
  Transmission Date: 20180711
  Serious: Yes (Hospitalization)
  Sender: FDA-Public Use
  Company Number: None

PATIENT
  Sex: Female
  Weight: 85.3 kg

DRUGS (3)
  1. BORTEZOMIB [Suspect]
     Active Substance: BORTEZOMIB
  2. LENALIDOMIDE [Suspect]
     Active Substance: LENALIDOMIDE
  3. DEXAMETHASONE. [Suspect]
     Active Substance: DEXAMETHASONE

REACTIONS (8)
  - Hypotension [None]
  - Tachycardia [None]
  - Tachypnoea [None]
  - Dyspnoea exertional [None]
  - Diarrhoea [None]
  - Hypoxia [None]
  - Productive cough [None]
  - Fatigue [None]

NARRATIVE: CASE EVENT DATE: 20180406
